FAERS Safety Report 15542787 (Version 1)
Quarter: 2018Q4

REPORT INFORMATION
  Report Type: Spontaneous
  Country: DK (occurrence: DK)
  Receive Date: 20181023
  Receipt Date: 20181023
  Transmission Date: 20190205
  Serious: Yes (Life-Threatening, Hospitalization)
  Sender: FDA-Public Use
  Company Number: DK-ALSI-201800569

PATIENT
  Age: 64 Year

DRUGS (1)
  1. OXYGEN. [Suspect]
     Active Substance: OXYGEN
     Indication: PRODUCT USED FOR UNKNOWN INDICATION
     Route: 055
     Dates: start: 20181003

REACTIONS (4)
  - Hypoxia [Recovered/Resolved]
  - Product quality issue [Recovered/Resolved]
  - Condition aggravated [Recovered/Resolved]
  - Underdose [Recovered/Resolved]
